FAERS Safety Report 15011175 (Version 1)
Quarter: 2018Q2

REPORT INFORMATION
  Report Type: Report from Study
  Country: DE (occurrence: DE)
  Receive Date: 20180614
  Receipt Date: 20180614
  Transmission Date: 20180711
  Serious: Yes (Other)
  Sender: FDA-Public Use
  Company Number: DE-CONCORDIA PHARMACEUTICALS INC.-E2B_00012499

PATIENT
  Sex: Male

DRUGS (10)
  1. VITAMIN E [Suspect]
     Active Substance: .ALPHA.-TOCOPHEROL
     Indication: EWING^S SARCOMA
     Dosage: 400 IE
     Route: 048
  2. VINCRISTINE [Suspect]
     Active Substance: VINCRISTINE
     Indication: EWING^S SARCOMA
     Route: 065
  3. TRIAMTERENE. [Suspect]
     Active Substance: TRIAMTERENE
     Indication: EWING^S SARCOMA
     Route: 048
  4. VORINOSTAT [Suspect]
     Active Substance: VORINOSTAT
     Indication: EWING^S SARCOMA
     Dosage: INCREASED AFTER DISEASE PROGRESSION
     Route: 048
  5. TRETINOIN. [Suspect]
     Active Substance: TRETINOIN
     Indication: EWING^S SARCOMA
     Route: 048
  6. CRIZOTINIB [Suspect]
     Active Substance: CRIZOTINIB
     Indication: EWING^S SARCOMA
     Route: 048
  7. PACLITAXEL. [Suspect]
     Active Substance: PACLITAXEL
     Indication: EWING^S SARCOMA
     Route: 042
  8. SORAFENIB [Suspect]
     Active Substance: SORAFENIB
     Indication: EWING^S SARCOMA
     Route: 048
  9. VORINOSTAT [Suspect]
     Active Substance: VORINOSTAT
     Indication: EWING^S SARCOMA
     Route: 048
  10. ARSENIC TRIOXIDE [Suspect]
     Active Substance: ARSENIC TRIOXIDE
     Indication: EWING^S SARCOMA
     Route: 048

REACTIONS (4)
  - Anaemia [Unknown]
  - Activated partial thromboplastin time prolonged [Unknown]
  - Thrombocytopenia [Unknown]
  - Lymphopenia [Unknown]
